FAERS Safety Report 15651504 (Version 2)
Quarter: 2019Q1

REPORT INFORMATION
  Report Type: Spontaneous
  Country: US (occurrence: US)
  Receive Date: 20181123
  Receipt Date: 20190111
  Transmission Date: 20190417
  Serious: No
  Sender: FDA-Public Use
  Company Number: US-SA-2018SA321663

PATIENT

DRUGS (1)
  1. ELITEK [Suspect]
     Active Substance: RASBURICASE

REACTIONS (1)
  - Product preparation error [Unknown]
